FAERS Safety Report 7175427-8 (Version None)
Quarter: 2010Q4

REPORT INFORMATION
  Report Type: 
  Country: None (occurrence: None)
  Receive Date: 20101220
  Receipt Date: 20100312
  Transmission Date: 20110411
  Serious: No
  Sender: FDA-Public Use
  Company Number: US-AMGEN-TCS399247

PATIENT

DRUGS (3)
  1. ENBREL [Suspect]
     Indication: PSORIASIS
     Dosage: 50 MG, 2 TIMES/WK
     Route: 058
     Dates: start: 20090401
  2. PEGINTERFERON ALFA-2A [Concomitant]
     Indication: HEPATITIS C
     Dosage: UNK UNK, UNK
     Dates: start: 20100216
  3. RIFAMPICIN [Concomitant]
     Indication: TUBERCULOSIS
     Dosage: UNK UNK, UNK

REACTIONS (1)
  - WHITE BLOOD CELL COUNT DECREASED [None]
